FAERS Safety Report 6672193-7 (Version None)
Quarter: 2010Q2

REPORT INFORMATION
  Report Type: 
  Country: None (occurrence: None)
  Receive Date: 20100408
  Receipt Date: 20100401
  Transmission Date: 20101027
  Serious: Yes (Hospitalization)
  Sender: FDA-Public Use
  Company Number: US-BIOGENIDEC-2010BI010199

PATIENT
  Age: 47 Year
  Sex: Female
  Weight: 102 kg

DRUGS (5)
  1. AVONEX [Suspect]
     Indication: MULTIPLE SCLEROSIS
     Route: 030
     Dates: start: 20000901, end: 20060210
  2. AVONEX [Suspect]
     Route: 030
     Dates: end: 20090401
  3. AVONEX [Suspect]
     Route: 030
  4. VALIUM [Concomitant]
     Indication: MUSCLE SPASMS
     Dates: start: 19740101
  5. PERCOCET [Concomitant]
     Indication: INTERVERTEBRAL DISC PROTRUSION
     Route: 048
     Dates: start: 19740101

REACTIONS (12)
  - ANXIETY [None]
  - DEPRESSION [None]
  - FALL [None]
  - FATIGUE [None]
  - HYSTERECTOMY [None]
  - MEMORY IMPAIRMENT [None]
  - MUSCLE SPASMS [None]
  - MUSCULOSKELETAL PAIN [None]
  - PAIN [None]
  - PYREXIA [None]
  - SINUSITIS [None]
  - TENDONITIS [None]
